FAERS Safety Report 7961734-5 (Version None)
Quarter: 2011Q4

REPORT INFORMATION
  Report Type: 
  Country: None (occurrence: None)
  Receive Date: 20111207
  Receipt Date: 20111124
  Transmission Date: 20120403
  Serious: Yes (Hospitalization, Other)
  Sender: FDA-Public Use
  Company Number: IE-MEDIMMUNE-MEDI-0013965

PATIENT
  Sex: Male
  Weight: 3.38 kg

DRUGS (1)
  1. SYNAGIS [Suspect]
     Route: 030
     Dates: start: 20111104, end: 20111104

REACTIONS (2)
  - UNEVALUABLE EVENT [None]
  - PALLOR [None]
